FAERS Safety Report 9179769 (Version 1)
Quarter: 2012Q4

REPORT INFORMATION
  Report Type: 
  Country: US (occurrence: US)
  Receive Date: 20121029
  Receipt Date: 20121029
  Transmission Date: 20130627
  Serious: No
  Sender: FDA-Public Use
  Company Number: US-B.I. PHARMACEUTICALS,INC./RIDGEFIELD-2012-BP-26245BP

PATIENT
  Sex: Male
  Weight: 64 kg

DRUGS (4)
  1. PRADAXA [Suspect]
     Indication: ATRIAL FIBRILLATION
     Dosage: 300 mg
     Route: 048
     Dates: start: 20121001, end: 20121005
  2. PREDNISONE [Concomitant]
     Dosage: 5 mg
     Route: 048
  3. SYNTHROID [Concomitant]
     Indication: HYPOTHYROIDISM
     Dosage: 125 mcg
     Route: 048
  4. ASPIRIN [Concomitant]
     Dosage: 81 mg
     Route: 048

REACTIONS (2)
  - Urticaria [Recovered/Resolved]
  - Abdominal pain [Recovered/Resolved]
